FAERS Safety Report 13635382 (Version 2)
Quarter: 2017Q3

REPORT INFORMATION
  Report Type: Spontaneous
  Country: US (occurrence: US)
  Receive Date: 20170609
  Receipt Date: 20170710
  Transmission Date: 20171127
  Serious: No
  Sender: FDA-Public Use
  Company Number: US-PFIZER INC-2017252262

PATIENT
  Age: 53 Year
  Sex: Female
  Weight: 57.15 kg

DRUGS (4)
  1. PREMARIN [Suspect]
     Active Substance: ESTROGENS, CONJUGATED
     Indication: VAGINAL DISORDER
     Dosage: 1 G, DAILY (EVERY NIGHT)
     Route: 067
     Dates: start: 201605
  2. MYRBETRIQ [Concomitant]
     Active Substance: MIRABEGRON
     Indication: NEUROGENIC BLADDER
     Dosage: 50 MG, DAILY (BEFORE BED)
     Dates: start: 201512
  3. PREMARIN [Suspect]
     Active Substance: ESTROGENS, CONJUGATED
     Indication: DYSPAREUNIA
     Dosage: 1 G, EVERY OTHER NIGHT
     Route: 067
     Dates: start: 201605
  4. OXYBUTYNIN HCL [Concomitant]
     Active Substance: OXYBUTYNIN
     Indication: NEUROGENIC BLADDER
     Dosage: 15 MG, DAILY (ONE IN THE DAYTIME)
     Dates: start: 201512

REACTIONS (2)
  - Sexual dysfunction [Unknown]
  - Intentional product misuse [Unknown]
